FAERS Safety Report 6313221-8 (Version None)
Quarter: 2009Q3

REPORT INFORMATION
  Report Type: 
  Country: None (occurrence: None)
  Receive Date: 20090818
  Receipt Date: 20090812
  Transmission Date: 20100115
  Serious: Yes (Other)
  Sender: FDA-Public Use
  Company Number: US-AVENTIS-200916586US

PATIENT
  Sex: Male
  Weight: 149.7 kg

DRUGS (1)
  1. LANTUS [Suspect]
     Route: 058
     Dates: start: 20080701

REACTIONS (1)
  - CATARACT [None]
